FAERS Safety Report 4402173-3 (Version None)
Quarter: 2004Q3

REPORT INFORMATION
  Report Type: 
  Country: None (occurrence: None)
  Receive Date: 20040714
  Receipt Date: 20040629
  Transmission Date: 20050211
  Serious: Yes (Other)
  Sender: FDA-Public Use
  Company Number: USA040671352

PATIENT
  Age: 62 Year
  Sex: Male
  Weight: 78 kg

DRUGS (1)
  1. HUMULIN N [Suspect]
     Dates: start: 19980101

REACTIONS (1)
  - COMA [None]
